FAERS Safety Report 5989277-9 (Version None)
Quarter: 2008Q4

REPORT INFORMATION
  Report Type: 
  Country: None (occurrence: None)
  Receive Date: 20081205
  Receipt Date: 20081128
  Transmission Date: 20090506
  Serious: Yes (Life-Threatening)
  Sender: FDA-Public Use
  Company Number: 2007JP003197

PATIENT
  Age: 51 Year
  Sex: Female
  Weight: 54 kg

DRUGS (7)
  1. PROGRAF [Suspect]
     Indication: LIVER TRANSPLANT
     Dosage: 3.25 MG, BID, ORAL 8 MG,/D  ORAL
     Route: 048
     Dates: start: 20060217, end: 20060401
  2. PROGRAF [Suspect]
     Indication: LIVER TRANSPLANT
     Dosage: 3.25 MG, BID, ORAL 8 MG,/D  ORAL
     Route: 048
     Dates: start: 20060401, end: 20060513
  3. PEGYLATED INTERFERON() INJECTION [Suspect]
     Indication: HEPATITIS C
     Dosage: 80 UG, UID/QD, INTRADERMAL
     Route: 023
     Dates: start: 20060426, end: 20060426
  4. MEDROL [Concomitant]
  5. REBETOL [Concomitant]
  6. SOL MEDROL (METHYLPREDNISOLONE, SUCCINATE SODIUM) PER ORAL NOS [Concomitant]
  7. INTERFERON ALFA-2B (INTERFERON ALFA-2B) UNKNOWN FORMULATION [Concomitant]

REACTIONS (4)
  - CEREBRAL HAEMORRHAGE [None]
  - CEREBRAL INFARCTION [None]
  - THERAPEUTIC AGENT TOXICITY [None]
  - THROMBOTIC MICROANGIOPATHY [None]
